FAERS Safety Report 18589479 (Version 2)
Quarter: 2021Q1

REPORT INFORMATION
  Report Type: Spontaneous
  Country: CA (occurrence: CA)
  Receive Date: 20201208
  Receipt Date: 20210101
  Transmission Date: 20210419
  Serious: Yes (Other)
  Sender: FDA-Public Use
  Company Number: CA-RECORDATI RARE DISEASES-2100740

PATIENT
  Age: 79 Year
  Sex: Female

DRUGS (13)
  1. SIGNIFOR LAR [Suspect]
     Active Substance: PASIREOTIDE PAMOATE
     Route: 030
     Dates: start: 20200606
  2. LIPITOR [Concomitant]
     Active Substance: ATORVASTATIN CALCIUM
  3. SIGNIFOR LAR [Suspect]
     Active Substance: PASIREOTIDE PAMOATE
     Route: 030
     Dates: start: 20200704
  4. SIGNIFOR LAR [Suspect]
     Active Substance: PASIREOTIDE PAMOATE
     Indication: ACROMEGALY
     Route: 030
     Dates: start: 20160627
  5. SIGNIFOR LAR [Suspect]
     Active Substance: PASIREOTIDE PAMOATE
     Route: 030
  6. SIGNIFOR LAR [Suspect]
     Active Substance: PASIREOTIDE PAMOATE
  7. SIGNIFOR LAR [Suspect]
     Active Substance: PASIREOTIDE PAMOATE
  8. METFORMIN [Concomitant]
     Active Substance: METFORMIN HYDROCHLORIDE
  9. SIGNIFOR LAR [Suspect]
     Active Substance: PASIREOTIDE PAMOATE
     Route: 030
     Dates: start: 20200704
  10. OZEMPIC [Concomitant]
     Active Substance: SEMAGLUTIDE
  11. SIGNIFOR LAR [Suspect]
     Active Substance: PASIREOTIDE PAMOATE
     Route: 030
     Dates: start: 20200731
  12. SIGNIFOR LAR [Suspect]
     Active Substance: PASIREOTIDE PAMOATE
  13. GLICLAZIDE [Concomitant]
     Active Substance: GLICLAZIDE

REACTIONS (7)
  - Blood glucose increased [Unknown]
  - Alopecia [Unknown]
  - Optic nerve injury [Unknown]
  - Fatigue [Unknown]
  - Cataract [Unknown]
  - Visual impairment [Not Recovered/Not Resolved]
  - Blood pressure increased [Recovered/Resolved]

NARRATIVE: CASE EVENT DATE: 2018
